FAERS Safety Report 7859901-4 (Version None)
Quarter: 2011Q4

REPORT INFORMATION
  Report Type: 
  Country: None (occurrence: None)
  Receive Date: 20111027
  Receipt Date: 20111025
  Transmission Date: 20120403
  Serious: Yes (Other)
  Sender: FDA-Public Use
  Company Number: US-PFIZER INC-2011260346

PATIENT
  Sex: Male
  Weight: 81.633 kg

DRUGS (2)
  1. TYLENOL-500 [Concomitant]
     Dosage: UNK
  2. PREPARATION H HEMORRHOIDAL SUPPOSITORIES [Suspect]
     Indication: HAEMORRHOIDS
     Dosage: UNK, 4X/DAY
     Route: 054
     Dates: start: 20111020, end: 20111025

REACTIONS (2)
  - RECTAL HAEMORRHAGE [None]
  - HYPERSENSITIVITY [None]
